FAERS Safety Report 18672698 (Version 1)
Quarter: 2020Q4

REPORT INFORMATION
  Report Type: Spontaneous
  Country: JP (occurrence: JP)
  Receive Date: 20201228
  Receipt Date: 20201228
  Transmission Date: 20210114
  Serious: Yes (Hospitalization, Other)
  Sender: FDA-Public Use
  Company Number: JP-DSJP-DSJ-2020-139447AA

PATIENT
  Sex: Female

DRUGS (7)
  1. ARTIST [Suspect]
     Active Substance: CARVEDILOL
     Indication: PRODUCT USED FOR UNKNOWN INDICATION
     Dosage: UNK
     Route: 065
  2. BELSOMRA [Suspect]
     Active Substance: SUVOREXANT
     Dosage: UNK
     Route: 065
  3. DESYREL [Suspect]
     Active Substance: TRAZODONE HYDROCHLORIDE
     Indication: DEPRESSION
     Dosage: 75 MG, DAILY
     Route: 065
  4. EFIENT [Suspect]
     Active Substance: PRASUGREL HYDROCHLORIDE
     Indication: PRODUCT USED FOR UNKNOWN INDICATION
     Dosage: UNK, QD
     Route: 065
  5. BAYASPIRIN [Suspect]
     Active Substance: ASPIRIN
     Dosage: UNK
     Route: 065
  6. PITAVASTATIN. [Suspect]
     Active Substance: PITAVASTATIN CALCIUM
     Dosage: UNK
     Route: 065
  7. TAKECAB [Suspect]
     Active Substance: VONOPRAZAN FUMARATE
     Dosage: UNK
     Route: 065

REACTIONS (22)
  - Cardiac disorder [Unknown]
  - Asthenopia [Unknown]
  - Eye pain [Unknown]
  - Confusional state [Unknown]
  - Dizziness [Unknown]
  - Headache [Unknown]
  - Akinesia [Unknown]
  - Feeling abnormal [Unknown]
  - Musculoskeletal stiffness [Unknown]
  - Emotional distress [Unknown]
  - Gastroenteritis [Unknown]
  - Loss of consciousness [Unknown]
  - Eye disorder [Unknown]
  - Pain [Unknown]
  - Listless [Unknown]
  - Drug hypersensitivity [Unknown]
  - Blood pressure decreased [Unknown]
  - Malaise [Unknown]
  - Somnolence [Unknown]
  - Fatigue [Unknown]
  - Head discomfort [Unknown]
  - Gait disturbance [Unknown]

NARRATIVE: CASE EVENT DATE: 20201202
